FAERS Safety Report 9886189 (Version 1)
Quarter: 2014Q1

REPORT INFORMATION
  Report Type: Spontaneous
  Country: US (occurrence: US)
  Receive Date: 20140210
  Receipt Date: 20140210
  Transmission Date: 20141002
  Serious: No
  Sender: FDA-Public Use
  Company Number: US-ENDO PHARMACEUTICALS INC.-PHEN20130005

PATIENT
  Sex: Male
  Weight: 95.34 kg

DRUGS (1)
  1. PHENTERMINE HCL TABLETS [Suspect]
     Indication: PRODUCT USED FOR UNKNOWN INDICATION
     Route: 048
     Dates: start: 20130327

REACTIONS (1)
  - Drug ineffective [Unknown]
